FAERS Safety Report 14689339 (Version 2)
Quarter: 2018Q2

REPORT INFORMATION
  Report Type: Report from Study
  Country: None (occurrence: TW)
  Receive Date: 20180328
  Receipt Date: 20180515
  Transmission Date: 20180711
  Serious: Yes (Hospitalization)
  Sender: FDA-Public Use
  Company Number: TW-ABBVIE-18K-153-2252156-00

PATIENT
  Age: 32 Year
  Sex: Male
  Weight: 83 kg

DRUGS (3)
  1. METHOTREXATE. [Concomitant]
     Active Substance: METHOTREXATE
     Indication: PSORIASIS
     Dosage: 10-15 MG
     Route: 048
     Dates: start: 20160516, end: 20180205
  2. HUMIRA [Suspect]
     Active Substance: ADALIMUMAB
     Route: 058
     Dates: start: 20180402
  3. HUMIRA [Suspect]
     Active Substance: ADALIMUMAB
     Indication: PSORIASIS
     Route: 058
     Dates: start: 20170502, end: 20180123

REACTIONS (14)
  - Mycobacterial infection [Recovering/Resolving]
  - Septal panniculitis [Recovering/Resolving]
  - Granuloma [Recovering/Resolving]
  - Erythema nodosum [Recovering/Resolving]
  - Panniculitis lobular [Recovering/Resolving]
  - Hyperaemia [Unknown]
  - Erythema [Recovering/Resolving]
  - Contusion [Recovering/Resolving]
  - Fall [Unknown]
  - Peripheral swelling [Recovering/Resolving]
  - Erythema [Recovering/Resolving]
  - Skin hypertrophy [Unknown]
  - Oedema [Unknown]
  - Injury [Unknown]

NARRATIVE: CASE EVENT DATE: 2018
